FAERS Safety Report 8833129 (Version 1)
Quarter: 2012Q4

REPORT INFORMATION
  Report Type: 
  Country: US (occurrence: US)
  Receive Date: 20121010
  Receipt Date: 20121010
  Transmission Date: 20130627
  Serious: Yes (Hospitalization)
  Sender: FDA-Public Use
  Company Number: US-MYLANLABS-2012S1020276

PATIENT
  Age: 49 Year
  Sex: Male

DRUGS (8)
  1. ZOLINZA [Suspect]
     Indication: MYCOSIS FUNGOIDES
     Dosage: 400 mg/day
     Route: 048
  2. DOXEPIN [Suspect]
     Dosage: 25mg at bedtime
     Route: 065
  3. SERTRALINE [Suspect]
     Dosage: 100 mg/day
     Route: 065
  4. HYDROCHLOROTHIAZIDE [Concomitant]
     Dosage: 25 mg/day
     Route: 065
  5. INSULIN ISOPHANE [Concomitant]
     Route: 065
  6. INSULIN [Concomitant]
     Route: 065
  7. NAPROXEN SODIUM [Concomitant]
     Indication: PAIN
     Dosage: As needed
     Route: 065
  8. OXYCODONE [Concomitant]
     Indication: PAIN
     Dosage: As needed
     Route: 065

REACTIONS (2)
  - Electrocardiogram QT prolonged [Recovering/Resolving]
  - Torsade de pointes [Recovered/Resolved]
